FAERS Safety Report 15361482 (Version 1)
Quarter: 2018Q3

REPORT INFORMATION
  Report Type: Spontaneous
  Country: FR (occurrence: FR)
  Receive Date: 20180907
  Receipt Date: 20180907
  Transmission Date: 20181010
  Serious: Yes (Hospitalization)
  Sender: FDA-Public Use
  Company Number: FR-EMD SERONO-E2B_90057412

PATIENT
  Age: 39 Year
  Sex: Female

DRUGS (3)
  1. BEMFOLA [Suspect]
     Active Substance: FOLLITROPIN
     Indication: CONTROLLED OVARIAN STIMULATION
     Dosage: 150 UI/ 0.25 ML
     Route: 058
     Dates: start: 20170115, end: 20170127
  2. ORGALUTRAN [Suspect]
     Active Substance: GANIRELIX ACETATE
     Indication: CONTROLLED OVARIAN STIMULATION
     Dosage: 0.25 MG/ 0.5 ML?SOLUTION INJECTABLE
     Route: 058
     Dates: start: 20170121, end: 20170127
  3. OVITRELLE [Suspect]
     Active Substance: CHORIOGONADOTROPIN ALFA
     Indication: OVULATION INDUCTION
     Route: 058
     Dates: start: 20170128, end: 20170128

REACTIONS (3)
  - Ovarian hyperstimulation syndrome [Recovered/Resolved]
  - Asthenia [Recovered/Resolved]
  - Ascites [Recovered/Resolved]

NARRATIVE: CASE EVENT DATE: 20170201
